FAERS Safety Report 6407500-3 (Version None)
Quarter: 2009Q4

REPORT INFORMATION
  Report Type: 
  Country: None (occurrence: None)
  Receive Date: 20091015
  Receipt Date: 20091009
  Transmission Date: 20100525
  Serious: Yes (Hospitalization)
  Sender: FDA-Public Use
  Company Number: 2009SP027993

PATIENT
  Age: 34 Year
  Sex: Female
  Weight: 82 kg

DRUGS (3)
  1. CLARITIN [Suspect]
     Indication: RHINITIS
     Dosage: PO
     Route: 048
     Dates: start: 20090901
  2. FOLIC ACID (CON.) [Concomitant]
  3. BEROTEC (CON.) [Concomitant]

REACTIONS (6)
  - ABDOMINAL PAIN [None]
  - DRUG EXPOSURE DURING PREGNANCY [None]
  - INFLUENZA [None]
  - PNEUMONIA [None]
  - PREGNANCY [None]
  - SOMNOLENCE [None]
